FAERS Safety Report 7068353 (Version 2)
Quarter: 2014Q3

REPORT INFORMATION
  Report Type: Spontaneous
  Country: US (occurrence: None)
  Receive Date: 20090724
  Receipt Date: 20140813
  Transmission Date: 20150326
  Serious: Yes (Hospitalization, Other)
  Sender: FDA-Public Use
  Company Number: 2009S1005465

PATIENT
  Age: 62 Year
  Sex: Female
  Weight: 79 kg

DRUGS (11)
  1. PHOSPHO-SODA [Suspect]
     Active Substance: SODIUM PHOSPHATE, DIBASIC\SODIUM PHOSPHATE, MONOBASIC
     Indication: COLONOSCOPY
     Dosage: 90 ML; TOTAL; PO
     Route: 048
     Dates: start: 20081124, end: 20081125
  2. MICARDIS HCT (HYDROCHLOROTHIAZIDE, TELMISARTAN) [Concomitant]
  3. REGLAN [Concomitant]
     Active Substance: METOCLOPRAMIDE HYDROCHLORIDE
  4. METFORMIN HYDROCHLORIDE. [Concomitant]
     Active Substance: METFORMIN HYDROCHLORIDE
  5. NAPROXEN. [Concomitant]
     Active Substance: NAPROXEN
  6. ULTRACET (PARACETAMOL, TRAMADOL HYDROCHLORIDE) [Concomitant]
  7. LEVOTHYROXINE [Concomitant]
     Active Substance: LEVOTHYROXINE
  8. ERSTROPIPATE [Concomitant]
  9. DOXAZOSIN [Concomitant]
     Active Substance: DOXAZOSIN\DOXAZOSIN MESYLATE
  10. LORATADINE. [Concomitant]
     Active Substance: LORATADINE
  11. GLYBURIDE (GLIBENCLAMIDE) [Concomitant]
     Active Substance: GLYBURIDE

REACTIONS (33)
  - Influenza like illness [None]
  - Dehydration [None]
  - Diabetes mellitus inadequate control [None]
  - Nausea [None]
  - Dysgeusia [None]
  - Peritoneal dialysis [None]
  - Abdominal distension [None]
  - Nephrocalcinosis [None]
  - Nephrosclerosis [None]
  - Insomnia [None]
  - Diabetic nephropathy [None]
  - Renal transplant [None]
  - Diverticulum intestinal [None]
  - Food intolerance [None]
  - Abdominal pain [None]
  - Hyponatraemia [None]
  - Electrolyte imbalance [None]
  - Arteriosclerosis [None]
  - Colon adenoma [None]
  - Diarrhoea [None]
  - Tubulointerstitial nephritis [None]
  - Hypomagnesaemia [None]
  - Renal tubular disorder [None]
  - Acute phosphate nephropathy [None]
  - Vomiting [None]
  - Nephrogenic anaemia [None]
  - Pyelocaliectasis [None]
  - Renal failure chronic [None]
  - Glomerulosclerosis [None]
  - Urate nephropathy [None]
  - Renal failure acute [None]
  - Gastroenteritis [None]
  - Glomerulonephritis [None]

NARRATIVE: CASE EVENT DATE: 20081222
